FAERS Safety Report 17537754 (Version 1)
Quarter: 2020Q1

REPORT INFORMATION
  Report Type: Spontaneous
  Country: CH (occurrence: CH)
  Receive Date: 20200313
  Receipt Date: 20200313
  Transmission Date: 20200409
  Serious: Yes (Hospitalization, Other)
  Sender: FDA-Public Use
  Company Number: CH-PFIZER INC-2020103495

PATIENT
  Age: 49 Year
  Sex: Male

DRUGS (8)
  1. FOCALIN [Interacting]
     Active Substance: DEXMETHYLPHENIDATE HYDROCHLORIDE
     Dosage: 5 MG, 2X/DAY
     Route: 048
     Dates: start: 201911
  2. OMEPRAZOLE. [Interacting]
     Active Substance: OMEPRAZOLE
     Dosage: 20 MG, 2X/WEEK (20 MG 1X/3-4DAY)
     Route: 048
  3. TEMESTA [LORAZEPAM] [Concomitant]
     Active Substance: LORAZEPAM
     Dosage: UNK UNK, AS NEEDED
     Dates: start: 20200207
  4. FOCALIN [Interacting]
     Active Substance: DEXMETHYLPHENIDATE HYDROCHLORIDE
     Indication: ATTENTION DEFICIT/HYPERACTIVITY DISORDER
     Dosage: 5 MG, 3X/DAY
     Route: 048
     Dates: start: 2019, end: 201911
  5. TESTOSTERONE. [Concomitant]
     Active Substance: TESTOSTERONE
     Dosage: UNK
  6. LYRICA [Suspect]
     Active Substance: PREGABALIN
     Indication: RESTLESS LEGS SYNDROME
     Dosage: 400 MG, 1X/DAY
     Route: 048
     Dates: start: 2016
  7. CANNABIS [Concomitant]
     Active Substance: CANNABIS SATIVA SUBSP. INDICA TOP
     Dosage: UNK, WEEKLY
  8. CANNABIDIOL [Concomitant]
     Active Substance: CANNABIDIOL
     Dosage: UNK, WEEKLY (1X / WEEK, ALTERNATING WITH CANNABIS)

REACTIONS (9)
  - Drug interaction [Not Recovered/Not Resolved]
  - Anxiety [Unknown]
  - Drug screen positive [Unknown]
  - Product dose omission [Unknown]
  - Renal failure [Unknown]
  - Blood creatine phosphokinase increased [Unknown]
  - Tremor [Unknown]
  - Dyskinesia [Not Recovered/Not Resolved]
  - Head titubation [Unknown]

NARRATIVE: CASE EVENT DATE: 201911
